FAERS Safety Report 10568858 (Version 1)
Quarter: 2014Q4

REPORT INFORMATION
  Report Type: Spontaneous
  Country: PR (occurrence: PR)
  Receive Date: 20141106
  Receipt Date: 20141106
  Transmission Date: 20150529
  Serious: No
  Sender: FDA-Public Use
  Company Number: PR-BAXTER-2014BAX062817

PATIENT
  Age: 69 Year
  Sex: Male

DRUGS (1)
  1. FLEXBUMIN 25% [Suspect]
     Active Substance: ALBUMIN (HUMAN)
     Indication: PRODUCT USED FOR UNKNOWN INDICATION
     Route: 065
     Dates: start: 20141015, end: 20141015

REACTIONS (3)
  - Poor quality drug administered [Recovered/Resolved]
  - No adverse event [Recovered/Resolved]
  - Product colour issue [Recovered/Resolved]

NARRATIVE: CASE EVENT DATE: 20141015
